FAERS Safety Report 16719835 (Version 1)
Quarter: 2019Q3

REPORT INFORMATION
  Report Type: Spontaneous
  Country: US (occurrence: US)
  Receive Date: 20190820
  Receipt Date: 20190820
  Transmission Date: 20191005
  Serious: No
  Sender: FDA-Public Use
  Company Number: US-PFIZER INC-2019353462

PATIENT
  Age: 9 Year
  Sex: Male

DRUGS (2)
  1. EUCRISA [Suspect]
     Active Substance: CRISABOROLE
     Dosage: UNK, DAILY (FOR 3 MONTHS)
     Dates: start: 2017
  2. EUCRISA [Suspect]
     Active Substance: CRISABOROLE
     Dosage: UNK, 1X/DAY (ABOUT 2 WEEKS)

REACTIONS (4)
  - Ear infection [Unknown]
  - Skin infection [Unknown]
  - Sinusitis [Unknown]
  - Off label use [Unknown]
